FAERS Safety Report 14602498 (Version 2)
Quarter: 2018Q1

REPORT INFORMATION
  Report Type: Spontaneous
  Country: US (occurrence: US)
  Receive Date: 20180306
  Receipt Date: 20180312
  Transmission Date: 20180509
  Serious: No
  Sender: FDA-Public Use
  Company Number: US-PFIZER INC-2018089292

PATIENT
  Sex: Male
  Weight: 86.17 kg

DRUGS (1)
  1. DIDREX [Suspect]
     Active Substance: BENZPHETAMINE HYDROCHLORIDE
     Dosage: UNK

REACTIONS (1)
  - Drug screen positive [Unknown]

NARRATIVE: CASE EVENT DATE: 201802
